FAERS Safety Report 9206879 (Version 2)
Quarter: 2014Q1

REPORT INFORMATION
  Report Type: Spontaneous
  Country: US (occurrence: US)
  Receive Date: 20130403
  Receipt Date: 20140124
  Transmission Date: 20141002
  Serious: Yes (Other)
  Sender: FDA-Public Use
  Company Number: US-BAYER-2013-040691

PATIENT
  Age: 18 Year
  Sex: Female

DRUGS (2)
  1. YASMIN [Suspect]
  2. YAZ [Suspect]

REACTIONS (8)
  - Gallbladder injury [None]
  - Cholecystitis chronic [None]
  - Pain [None]
  - Injury [None]
  - Anhedonia [None]
  - Anxiety [None]
  - Quality of life decreased [None]
  - Fear of disease [None]
